APPROVED DRUG PRODUCT: OLANZAPINE
Active Ingredient: OLANZAPINE
Strength: 5MG
Dosage Form/Route: TABLET, ORALLY DISINTEGRATING;ORAL
Application: A077243 | Product #001 | TE Code: AB
Applicant: BARR LABORATORIES INC
Approved: Jan 30, 2012 | RLD: No | RS: No | Type: RX